FAERS Safety Report 11858958 (Version 3)
Quarter: 2015Q4

REPORT INFORMATION
  Report Type: Spontaneous
  Country: US (occurrence: US)
  Receive Date: 20151222
  Receipt Date: 20151229
  Transmission Date: 20160305
  Serious: No
  Sender: FDA-Public Use
  Company Number: US-HORIZON-RAV-0117-2015

PATIENT
  Age: 12 Year
  Sex: Female

DRUGS (2)
  1. CYCLINEX 2 [Concomitant]
  2. RAVICTI [Suspect]
     Active Substance: GLYCEROL PHENYLBUTYRATE
     Indication: UREA CYCLE ENZYME DEFICIENCY
     Dosage: 2 ML, TID
     Dates: start: 20130318, end: 20150929

REACTIONS (1)
  - Ammonia increased [Recovered/Resolved]
